FAERS Safety Report 9499381 (Version 1)
Quarter: 2013Q3

REPORT INFORMATION
  Report Type: Spontaneous
  Country: US (occurrence: US)
  Receive Date: 20130905
  Receipt Date: 20130905
  Transmission Date: 20140515
  Serious: No
  Sender: FDA-Public Use
  Company Number: US-009507513-1309USA000287

PATIENT
  Age: 50 Year
  Sex: Female

DRUGS (2)
  1. JANUMET [Suspect]
     Indication: DIABETES MELLITUS
     Dosage: 50MG/500MG/ TWICE DAILY
     Route: 048
     Dates: start: 2013, end: 2013
  2. JANUMET [Suspect]
     Dosage: 50MG/500MG/TWICE DAILY
     Route: 048
     Dates: start: 2013

REACTIONS (1)
  - Myalgia [Recovering/Resolving]
